FAERS Safety Report 10741046 (Version 5)
Quarter: 2015Q1

REPORT INFORMATION
  Report Type: Report from Study
  Country: PL (occurrence: PL)
  Receive Date: 20150127
  Receipt Date: 20150327
  Transmission Date: 20150721
  Serious: Yes (Hospitalization, Disabling, Other)
  Sender: FDA-Public Use
  Company Number: PL-CELGENE-POL-2014115798

PATIENT
  Age: 38 Year
  Sex: Male
  Weight: 77.5 kg

DRUGS (3)
  1. CC-10004 [Suspect]
     Active Substance: APREMILAST
     Indication: PSORIATIC ARTHROPATHY
     Route: 048
     Dates: start: 20120105
  2. LORISTA H [Concomitant]
     Indication: HYPERTENSION
     Route: 048
     Dates: start: 20140704
  3. VICEBROL [Concomitant]
     Active Substance: VINPOCETINE
     Indication: VERTIGO
     Dosage: 2 TABLET
     Route: 048
     Dates: start: 20141002

REACTIONS (3)
  - Meniere^s disease [Not Recovered/Not Resolved]
  - Deafness neurosensory [Not Recovered/Not Resolved]
  - Glaucoma [Not Recovered/Not Resolved]

NARRATIVE: CASE EVENT DATE: 20131225
